FAERS Safety Report 6357687-6 (Version None)
Quarter: 2009Q3

REPORT INFORMATION
  Report Type: 
  Country: None (occurrence: None)
  Receive Date: 20090916
  Receipt Date: 20090903
  Transmission Date: 20100115
  Serious: Yes (Congenital Anomaly)
  Sender: FDA-Public Use
  Company Number: GB-CELGENEUS-167-20484-09090446

PATIENT
  Sex: Female
  Weight: 3.8 kg

DRUGS (1)
  1. INNOHEP [Suspect]
     Route: 064
     Dates: start: 20071120, end: 20080610

REACTIONS (2)
  - DRUG EXPOSURE DURING PREGNANCY [None]
  - PYELOCALIECTASIS [None]
